FAERS Safety Report 19179126 (Version 1)
Quarter: 2021Q2

REPORT INFORMATION
  Report Type: Spontaneous
  Country: US (occurrence: US)
  Receive Date: 20210426
  Receipt Date: 20210426
  Transmission Date: 20210717
  Serious: No
  Sender: FDA-Public Use
  Company Number: US-STRIDES ARCOLAB LIMITED-2021SP001621

PATIENT
  Age: 85 Year
  Sex: Male

DRUGS (2)
  1. ITRACONAZOLE. [Suspect]
     Active Substance: ITRACONAZOLE
     Indication: BASAL CELL CARCINOMA
     Dosage: 100 MILLIGRAM, PER DAY
     Route: 065
  2. VISMODEGIB. [Concomitant]
     Active Substance: VISMODEGIB
     Indication: BASAL CELL CARCINOMA
     Dosage: 150 MILLIGRAM, 2 TIMES A WEEK (ON MONDAY AND FRIDAY)
     Route: 065

REACTIONS (1)
  - Off label use [Unknown]
